FAERS Safety Report 5796023-0 (Version None)
Quarter: 2008Q3

REPORT INFORMATION
  Report Type: 
  Country: None (occurrence: None)
  Receive Date: 20080701
  Receipt Date: 20080618
  Transmission Date: 20090109
  Serious: Yes (Death, Hospitalization)
  Sender: FDA-Public Use
  Company Number: US-ROCHE-570772

PATIENT
  Age: 42 Year
  Sex: Female

DRUGS (1)
  1. TICLID [Suspect]
     Indication: DRUG USE FOR UNKNOWN INDICATION
     Route: 065
     Dates: start: 19970101

REACTIONS (3)
  - CARDIAC ARREST [None]
  - DEATH [None]
  - THROMBOCYTOPENIC PURPURA [None]
